FAERS Safety Report 15712998 (Version 1)
Quarter: 2018Q4

REPORT INFORMATION
  Report Type: Spontaneous
  Country: US (occurrence: US)
  Receive Date: 20181211
  Receipt Date: 20181211
  Transmission Date: 20190205
  Serious: Yes (Other)
  Sender: FDA-Public Use
  Company Number: None

PATIENT
  Age: 26 Year
  Sex: Male
  Weight: 91.63 kg

DRUGS (9)
  1. DIPHENHYDRAMINE. [Concomitant]
     Active Substance: DIPHENHYDRAMINE
  2. ETOPOSIDE. [Concomitant]
     Active Substance: ETOPOSIDE
  3. MELATONIN [Concomitant]
     Active Substance: MELATONIN
  4. DEXAMETHASONE. [Concomitant]
     Active Substance: DEXAMETHASONE
  5. CISPLATIN. [Concomitant]
     Active Substance: CISPLATIN
  6. ONDANSETRON [Concomitant]
     Active Substance: ONDANSETRON
  7. STOOL SOFTNER [Concomitant]
  8. BLEOMYCIN [Suspect]
     Active Substance: BLEOMYCIN SULFATE
     Indication: TESTIS CANCER
  9. ZARXIO [Concomitant]
     Active Substance: FILGRASTIM-SNDZ

REACTIONS (2)
  - Shock [None]
  - Pain [None]
